FAERS Safety Report 9162470 (Version 3)
Quarter: 2013Q2

REPORT INFORMATION
  Report Type: Spontaneous
  Country: US (occurrence: None)
  Receive Date: 20130221
  Receipt Date: 20130423
  Transmission Date: 20140414
  Serious: Yes (Disabling, Other)
  Sender: FDA-Public Use
  Company Number: 2013034684

PATIENT
  Sex: Female

DRUGS (3)
  1. CARIMUNE [Suspect]
     Indication: POLYMYOSITIS
     Dosage: 24 G QD, MAX RATE OF 100 CC/HR INTRAVENOUS (NOT OTHERWISE SPECIFIED))
     Route: 042
     Dates: start: 20070321, end: 20070325
  2. GAMMAGARD S/D [Suspect]
     Indication: POLYMYOSITIS
     Route: 042
     Dates: start: 20070716, end: 20070723
  3. RECEPTIN (ALL OTHER THERAPEUTIC PRODUCTS) [Concomitant]

REACTIONS (7)
  - Transmission of an infectious agent via product [None]
  - Hepatitis C antibody positive [None]
  - Liver injury [None]
  - Nervous system disorder [None]
  - Injury [None]
  - Pain [None]
  - Anxiety [None]
